FAERS Safety Report 8627227 (Version 2)
Quarter: 2013Q1

REPORT INFORMATION
  Report Type: Spontaneous
  Country: US (occurrence: US)
  Receive Date: 20120621
  Receipt Date: 20130227
  Transmission Date: 20140127
  Serious: No
  Sender: FDA-Public Use
  Company Number: US-BIOGENIDEC-2012BI021119

PATIENT
  Sex: Female

DRUGS (3)
  1. TYSABRI [Suspect]
     Indication: MULTIPLE SCLEROSIS
     Route: 042
     Dates: start: 20071130, end: 20121114
  2. MAXALT [Concomitant]
     Indication: MIGRAINE
  3. ZONISAMIDE [Concomitant]
     Indication: MIGRAINE

REACTIONS (9)
  - Vertigo [Unknown]
  - Gait disturbance [Unknown]
  - Memory impairment [Not Recovered/Not Resolved]
  - Migraine [Recovered/Resolved]
  - Fibromyalgia [Not Recovered/Not Resolved]
  - Drug hypersensitivity [Recovered/Resolved]
  - JC virus test positive [Unknown]
  - Fatigue [Not Recovered/Not Resolved]
  - Sinus headache [Recovered/Resolved]
